FAERS Safety Report 4659169-6 (Version None)
Quarter: 2005Q2

REPORT INFORMATION
  Report Type: 
  Country: None (occurrence: None)
  Receive Date: 20050511
  Receipt Date: 20050119
  Transmission Date: 20051028
  Serious: Yes (Other)
  Sender: FDA-Public Use
  Company Number: AR-BRISTOL-MYERS SQUIBB COMPANY-12830584

PATIENT
  Age: 66 Year
  Sex: Female
  Weight: 117 kg

DRUGS (6)
  1. IRBESARTAN [Suspect]
     Indication: HYPERTENSION
     Dosage: TEMPORARILY STOPPED D/T EVENT
     Dates: start: 20040806, end: 20050119
  2. BLINDED: PLACEBO [Suspect]
     Indication: HYPERTENSION
     Dosage: TEMPORARILY STOPPED D/T EVENT
     Dates: start: 20040806, end: 20050119
  3. WARFARIN SODIUM [Suspect]
     Indication: PROPHYLAXIS
     Route: 048
     Dates: start: 20040806, end: 20050119
  4. ENALAPRIL MALEATE [Concomitant]
  5. BISOPROLOL [Concomitant]
  6. AMIODARONE HCL [Concomitant]

REACTIONS (2)
  - AGEUSIA [None]
  - ANOSMIA [None]
